FAERS Safety Report 22668001 (Version 3)
Quarter: 2023Q4

REPORT INFORMATION
  Report Type: Spontaneous
  Country: US (occurrence: None)
  Receive Date: 20230704
  Receipt Date: 20231130
  Transmission Date: 20240110
  Serious: Yes (Hospitalization)
  Sender: FDA-Public Use
  Company Number: 2023A150693

PATIENT
  Age: 59 Year
  Sex: Male
  Weight: 134.2 kg

DRUGS (6)
  1. BRILINTA [Suspect]
     Active Substance: TICAGRELOR
     Indication: Coronary artery disease
     Route: 048
     Dates: start: 20220817
  2. BRILINTA [Suspect]
     Active Substance: TICAGRELOR
     Indication: Stent placement
     Route: 048
     Dates: start: 20220817
  3. INCLISIRAN [Suspect]
     Active Substance: INCLISIRAN
     Indication: Acute coronary syndrome
     Dosage: UNKNOWN
     Route: 058
  4. INCLISIRAN [Suspect]
     Active Substance: INCLISIRAN
     Indication: Hyperlipidaemia
     Dosage: UNKNOWN
     Route: 058
  5. ASPIRIN [Suspect]
     Active Substance: ASPIRIN
     Indication: Coronary artery disease
     Route: 048
     Dates: start: 2008
  6. ASPIRIN [Suspect]
     Active Substance: ASPIRIN
     Indication: Stent placement
     Route: 048
     Dates: start: 2008

REACTIONS (6)
  - Rectal haemorrhage [Recovered/Resolved]
  - Gastrointestinal haemorrhage [Recovering/Resolving]
  - Faeces discoloured [Not Recovered/Not Resolved]
  - Enteritis [Unknown]
  - Diverticulum intestinal [Unknown]
  - Haematochezia [Unknown]

NARRATIVE: CASE EVENT DATE: 20230403
